FAERS Safety Report 26023448 (Version 3)
Quarter: 2025Q4

REPORT INFORMATION
  Report Type: Spontaneous
  Country: US (occurrence: US)
  Receive Date: 20251111
  Receipt Date: 20251231
  Transmission Date: 20260117
  Serious: Yes (Other)
  Sender: CIPLA
  Company Number: US-CIPLA (EU) LIMITED-2025US13783

PATIENT

DRUGS (1)
  1. LENALIDOMIDE [Suspect]
     Active Substance: LENALIDOMIDE
     Indication: Plasma cell myeloma
     Dosage: 10 MILLIGRAM, QD (ONCE DAILY FOR 21 DAYS, THEN 7 DAYS OFF)
     Route: 048

REACTIONS (2)
  - Gallbladder disorder [Unknown]
  - Platelet count decreased [Unknown]
